FAERS Safety Report 4331411-0 (Version None)
Quarter: 2004Q1

REPORT INFORMATION
  Report Type: 
  Country: None (occurrence: None)
  Receive Date: 20040331
  Receipt Date: 20040319
  Transmission Date: 20041129
  Serious: Yes (Other)
  Sender: FDA-Public Use
  Company Number: FR-JNJFOC-20040201001

PATIENT
  Age: 68 Year
  Sex: Male
  Weight: 80 kg

DRUGS (6)
  1. REMICADE [Suspect]
     Indication: PSORIATIC ARTHROPATHY
     Dosage: INTRAVENOUS
     Route: 042
     Dates: start: 20031205, end: 20031218
  2. METHOTREXATE [Concomitant]
  3. PREDNISONE TAB [Concomitant]
  4. CELECTOL [Concomitant]
  5. ALDACTAZINE (ALDACTAZINE) [Concomitant]
  6. FOSAMAX [Concomitant]

REACTIONS (1)
  - SQUAMOUS CELL CARCINOMA [None]
